FAERS Safety Report 15969144 (Version 1)
Quarter: 2019Q1

REPORT INFORMATION
  Report Type: Spontaneous
  Country: US (occurrence: US)
  Receive Date: 20190215
  Receipt Date: 20190215
  Transmission Date: 20190418
  Serious: No
  Sender: FDA-Public Use
  Company Number: US-ALNYLAM PHARMACEUTICALS, INC.-ALN-2018-000344

PATIENT
  Sex: Male

DRUGS (2)
  1. DIPHENHYDRAMINE. [Suspect]
     Active Substance: DIPHENHYDRAMINE
     Indication: PROPHYLAXIS
     Route: 065
  2. ONPATTRO [Suspect]
     Active Substance: PATISIRAN SODIUM
     Indication: HEREDITARY NEUROPATHIC AMYLOIDOSIS
     Dosage: UNK, Q3W
     Route: 042
     Dates: start: 20170313

REACTIONS (9)
  - Hypoaesthesia [Unknown]
  - Arthralgia [Unknown]
  - Diarrhoea [Unknown]
  - Discomfort [Unknown]
  - Dyspnoea [Unknown]
  - Constipation [Unknown]
  - Peripheral swelling [Unknown]
  - Paraesthesia [Unknown]
  - Restless legs syndrome [Unknown]
